FAERS Safety Report 6476492-3 (Version None)
Quarter: 2009Q4

REPORT INFORMATION
  Report Type: 
  Country: None (occurrence: None)
  Receive Date: 20091207
  Receipt Date: 20091127
  Transmission Date: 20100525
  Serious: Yes (Death, Other)
  Sender: FDA-Public Use
  Company Number: US-CUBIST-2009S1000404

PATIENT
  Age: 6 Year
  Sex: Male
  Weight: 22.7 kg

DRUGS (15)
  1. CUBICIN [Suspect]
     Indication: ENTEROCOCCAL BACTERAEMIA
     Route: 042
     Dates: start: 20090828, end: 20090905
  2. CUBICIN [Suspect]
     Route: 042
     Dates: start: 20090828, end: 20090905
  3. VELCADE [Suspect]
     Indication: ACUTE MYELOID LEUKAEMIA
     Route: 042
     Dates: start: 20090807, end: 20090814
  4. IDARUBICIN HCL [Suspect]
     Indication: ACUTE MYELOID LEUKAEMIA
     Route: 042
     Dates: start: 20090807, end: 20090809
  5. AMPHOTERICIN B [Concomitant]
     Indication: PROPHYLAXIS
     Route: 042
     Dates: start: 20090825, end: 20090917
  6. CEFEPIME [Concomitant]
     Indication: PROPHYLAXIS
     Route: 042
     Dates: start: 20090805, end: 20090823
  7. FLAGYL [Concomitant]
     Indication: ANTIBIOTIC PROPHYLAXIS
     Route: 042
     Dates: start: 20090823, end: 20090905
  8. GENTAMICIN [Concomitant]
     Indication: ENTEROCOCCAL INFECTION
     Route: 042
     Dates: start: 20090823, end: 20090903
  9. FUROSEMIDE [Concomitant]
     Indication: PULMONARY OEDEMA
     Route: 042
     Dates: start: 20090902, end: 20090917
  10. FUROSEMIDE [Concomitant]
     Route: 042
     Dates: start: 20090902, end: 20090917
  11. MEROPENEM [Concomitant]
     Indication: ANTIBIOTIC PROPHYLAXIS
  12. MILRINONE [Concomitant]
     Indication: CARDIAC FAILURE
     Route: 042
     Dates: start: 20090903, end: 20090905
  13. SYNTHROID [Concomitant]
     Indication: DRUG USE FOR UNKNOWN INDICATION
     Route: 048
     Dates: start: 20090906, end: 20090914
  14. CYTARABINE [Concomitant]
     Indication: ACUTE MYELOID LEUKAEMIA
     Route: 042
     Dates: start: 20090807, end: 20090814
  15. TIGECYCLINE [Concomitant]
     Indication: ENTEROCOCCAL INFECTION
     Route: 042
     Dates: start: 20090905, end: 20090911

REACTIONS (7)
  - CARDIOGENIC SHOCK [None]
  - COR PULMONALE [None]
  - ELECTROCARDIOGRAM QT PROLONGED [None]
  - LEFT VENTRICULAR DYSFUNCTION [None]
  - MYOCARDITIS [None]
  - RIGHT VENTRICULAR DYSFUNCTION [None]
  - TACHYCARDIA [None]
